FAERS Safety Report 17257808 (Version 2)
Quarter: 2020Q1

REPORT INFORMATION
  Report Type: Spontaneous
  Country: US (occurrence: US)
  Receive Date: 20200110
  Receipt Date: 20200114
  Transmission Date: 20200409
  Serious: Yes (Other)
  Sender: FDA-Public Use
  Company Number: US-PFIZER INC-2020006399

PATIENT
  Age: 71 Year
  Sex: Male

DRUGS (3)
  1. ROCURONIUM [ROCURONIUM BROMIDE] [Concomitant]
     Indication: ENDOTRACHEAL INTUBATION
     Dosage: UNK
  2. ETOMIDATE. [Suspect]
     Active Substance: ETOMIDATE
     Indication: ENDOTRACHEAL INTUBATION
     Dosage: UNK
  3. HYDROCORTISONE SODIUM SUCCINATE [Suspect]
     Active Substance: HYDROCORTISONE SODIUM SUCCINATE
     Indication: ENDOTRACHEAL INTUBATION
     Dosage: 50 MG, 4X/DAY (Q 6H)
     Route: 042

REACTIONS (1)
  - Ketoacidosis [Recovered/Resolved]
